FAERS Safety Report 8260290-4 (Version None)
Quarter: 2012Q2

REPORT INFORMATION
  Report Type: 
  Country: None (occurrence: None)
  Receive Date: 20120404
  Receipt Date: 20120322
  Transmission Date: 20120825
  Serious: Yes (Other)
  Sender: FDA-Public Use
  Company Number: US-ROCHE-1052602

PATIENT
  Sex: Female
  Weight: 79.904 kg

DRUGS (3)
  1. XELODA [Suspect]
     Indication: BREAST CANCER METASTATIC
     Dates: start: 20110817
  2. HERCEPTIN [Suspect]
     Indication: BREAST CANCER METASTATIC
     Route: 042
     Dates: start: 20120301
  3. XELODA [Suspect]
     Dates: start: 20120301

REACTIONS (3)
  - ERYTHEMA [None]
  - DISEASE PROGRESSION [None]
  - PARAESTHESIA [None]
